FAERS Safety Report 21448743 (Version 1)
Quarter: 2022Q4

REPORT INFORMATION
  Report Type: Other
  Country: GB (occurrence: GB)
  Receive Date: 20221013
  Receipt Date: 20221013
  Transmission Date: 20230112
  Serious: Yes (Other)
  Sender: FDA-Public Use
  Company Number: GB-MACLEODS PHARMA EU LTD-MAC2022037697

PATIENT

DRUGS (6)
  1. MEMANTINE [Suspect]
     Active Substance: MEMANTINE
     Indication: Ill-defined disorder
     Dosage: UNK
     Route: 065
     Dates: start: 20211116, end: 20220927
  2. AMLODIPINE [Concomitant]
     Active Substance: AMLODIPINE BESYLATE
     Indication: Ill-defined disorder
     Dosage: UNK UNK, QD
     Route: 065
     Dates: start: 20210615
  3. Aqueous cream [Concomitant]
     Indication: Ill-defined disorder
     Dosage: UNK UNK, PRN
     Route: 065
     Dates: start: 20220913
  4. ATORVASTATIN [Concomitant]
     Active Substance: ATORVASTATIN
     Indication: Ill-defined disorder
     Dosage: UNK (ONE TO BE TAKEN EACH DAY)
     Route: 065
     Dates: start: 20191125
  5. BISOPROLOL [Concomitant]
     Active Substance: BISOPROLOL
     Indication: Ill-defined disorder
     Dosage: UNK (ONE TO BE TAKEN EACH DAY)
     Route: 065
     Dates: start: 20191125
  6. CANDESARTAN [Concomitant]
     Active Substance: CANDESARTAN
     Indication: Ill-defined disorder
     Dosage: 1 DOSAGE FORM, QD (TAKE ONE TABLET A DAY)
     Route: 065
     Dates: start: 20191125

REACTIONS (2)
  - Tinnitus [Recovered/Resolved]
  - Dizziness [Recovered/Resolved]

NARRATIVE: CASE EVENT DATE: 20211130
